FAERS Safety Report 14334699 (Version 1)
Quarter: 2017Q4

REPORT INFORMATION
  Report Type: Spontaneous
  Country: FR (occurrence: FR)
  Receive Date: 20171228
  Receipt Date: 20171228
  Transmission Date: 20180321
  Serious: Yes (Hospitalization)
  Sender: FDA-Public Use
  Company Number: FR-MYLANLABS-2017M1082548

PATIENT
  Age: 83 Year
  Sex: Male
  Weight: 77.9 kg

DRUGS (12)
  1. SPECIAFOLDINE [Suspect]
     Active Substance: FOLIC ACID
     Indication: ANAEMIA MACROCYTIC
     Route: 048
     Dates: start: 20170313, end: 20170406
  2. VITAMINE B12 DELAGRANGE [Suspect]
     Active Substance: CYANOCOBALAMIN
     Indication: ANAEMIA VITAMIN B12 DEFICIENCY
     Route: 048
     Dates: start: 20170311, end: 20170319
  3. LANTUS [Concomitant]
     Active Substance: INSULIN GLARGINE
     Route: 058
  4. PANTOPRAZOLE [Suspect]
     Active Substance: PANTOPRAZOLE
     Indication: GASTROINTESTINAL HAEMORRHAGE
     Route: 042
     Dates: start: 20170307, end: 20170310
  5. PANTOPRAZOLE MYLAN 40 MG, COMPRIM? GASTRO-R?SISTANT [Suspect]
     Active Substance: PANTOPRAZOLE SODIUM
     Indication: GASTROINTESTINAL HAEMORRHAGE
     Route: 048
     Dates: start: 20170310, end: 20170406
  6. LASILIX                            /00032601/ [Suspect]
     Active Substance: FUROSEMIDE
     Indication: OEDEMA PERIPHERAL
     Route: 048
     Dates: start: 20170306, end: 20170406
  7. LERCAN [Concomitant]
     Active Substance: LERCANIDIPINE
     Route: 048
  8. CIPROFLOXACINE                     /00697201/ [Suspect]
     Active Substance: CIPROFLOXACIN
     Indication: URINARY TRACT INFECTION
     Route: 048
     Dates: start: 20170320, end: 20170406
  9. VITAMINE B12 DELAGRANGE [Suspect]
     Active Substance: CYANOCOBALAMIN
     Indication: ANAEMIA VITAMIN B12 DEFICIENCY
     Route: 048
     Dates: start: 20170320, end: 20170406
  10. ELIQUIS [Concomitant]
     Active Substance: APIXABAN
     Route: 048
  11. METFORMINE [Concomitant]
     Active Substance: METFORMIN HYDROCHLORIDE
     Route: 048
  12. DIFFU K [Concomitant]
     Active Substance: POTASSIUM CHLORIDE
     Route: 048

REACTIONS (3)
  - Rash maculo-papular [Recovering/Resolving]
  - Herpes simplex [Recovering/Resolving]
  - Eosinophilia [Recovering/Resolving]

NARRATIVE: CASE EVENT DATE: 20170404
